FAERS Safety Report 14382337 (Version 2)
Quarter: 2018Q3

REPORT INFORMATION
  Report Type: Report from Study
  Country: FR (occurrence: FR)
  Receive Date: 20180112
  Receipt Date: 20180730
  Transmission Date: 20181010
  Serious: Yes (Life-Threatening, Hospitalization, Other)
  Sender: FDA-Public Use
  Company Number: FR-TEVA-2018-FR-846060

PATIENT
  Sex: Female

DRUGS (12)
  1. VINCRISTINE [Suspect]
     Active Substance: VINCRISTINE
     Indication: ACUTE LYMPHOCYTIC LEUKAEMIA
     Dosage: 2 UNK, UNK
     Dates: start: 20170905, end: 20170926
  2. HYDROCORTISONE. [Suspect]
     Active Substance: HYDROCORTISONE
     Indication: ACUTE LYMPHOCYTIC LEUKAEMIA
     Dosage: 30 MG, UNK
     Route: 037
     Dates: start: 20170908, end: 20170926
  3. HYDROCORTISONE. [Suspect]
     Active Substance: HYDROCORTISONE
     Dosage: 30 MG, 1X/DAY:QD
     Route: 037
     Dates: start: 20170908, end: 20170908
  4. METHOTREXATE. [Suspect]
     Active Substance: METHOTREXATE
     Dosage: 15 MILLIGRAM DAILY; 15 MG, 1X/DAY:QD
     Route: 037
     Dates: start: 20170905, end: 20170925
  5. CYTARABINE. [Suspect]
     Active Substance: CYTARABINE
     Dosage: 15 MG, 1X/DAY:QD
     Route: 037
     Dates: start: 20170908, end: 20170908
  6. DEXAMETHASONE. [Suspect]
     Active Substance: DEXAMETHASONE
     Indication: ACUTE LYMPHOCYTIC LEUKAEMIA
     Dosage: 16.5 MG, UNK
     Route: 048
     Dates: start: 20170905, end: 20170925
  7. SULFAMETHOXAZOLE AND TRIMETHOPRIM [Concomitant]
     Active Substance: SULFAMETHOXAZOLE\TRIMETHOPRIM
     Indication: PRODUCT USED FOR UNKNOWN INDICATION
  8. PEGASPARGASE [Suspect]
     Active Substance: PEGASPARGASE
     Indication: ACUTE LYMPHOCYTIC LEUKAEMIA
     Dosage: 4250 IU, UNK
     Dates: start: 20170908, end: 20170908
  9. OROKEN [Concomitant]
     Active Substance: CEFIXIME
     Indication: CYSTITIS BACTERIAL
  10. CYTARABINE. [Suspect]
     Active Substance: CYTARABINE
     Indication: ACUTE LYMPHOCYTIC LEUKAEMIA
     Dosage: 15 MG, UNK
     Route: 037
     Dates: start: 20170908, end: 20170926
  11. METHOTREXATE. [Suspect]
     Active Substance: METHOTREXATE
     Indication: ACUTE LYMPHOCYTIC LEUKAEMIA
     Dosage: 15 MG, UNK
     Route: 037
     Dates: start: 20170908, end: 20170908
  12. ADRIAMYCIN [Suspect]
     Active Substance: DOXORUBICIN HYDROCHLORIDE
     Indication: ACUTE LYMPHOCYTIC LEUKAEMIA
     Dosage: 52 MG, UNK
     Dates: start: 20170905, end: 20170926

REACTIONS (2)
  - Febrile bone marrow aplasia [Recovering/Resolving]
  - Septic shock [Recovered/Resolved]

NARRATIVE: CASE EVENT DATE: 20170926
